FAERS Safety Report 17268359 (Version 2)
Quarter: 2020Q1

REPORT INFORMATION
  Report Type: Spontaneous
  Country: US (occurrence: US)
  Receive Date: 20200114
  Receipt Date: 20200116
  Transmission Date: 20200409
  Serious: Yes (Other)
  Sender: FDA-Public Use
  Company Number: US-TEVA-2020-US-1167814

PATIENT
  Sex: Male

DRUGS (1)
  1. BUPRENORPHINE. [Suspect]
     Active Substance: BUPRENORPHINE
     Indication: BACK DISORDER
     Dosage: 20 MCG/HOUR
     Route: 062

REACTIONS (5)
  - Application site haemorrhage [Unknown]
  - Urticaria [Unknown]
  - Product quality issue [Unknown]
  - Skin reaction [Unknown]
  - Application site erosion [Unknown]
